FAERS Safety Report 19451652 (Version 1)
Quarter: 2021Q2

REPORT INFORMATION
  Report Type: Spontaneous
  Country: US (occurrence: US)
  Receive Date: 20210623
  Receipt Date: 20210623
  Transmission Date: 20210717
  Serious: No
  Sender: FDA-Public Use
  Company Number: US-ACCORD-220986

PATIENT
  Sex: Male
  Weight: 79.38 kg

DRUGS (2)
  1. OXYCODONE [Concomitant]
     Active Substance: OXYCODONE
     Dosage: 5 TIMES A DAY
     Route: 048
  2. CLONAZEPAM ACCORD [Suspect]
     Active Substance: CLONAZEPAM
     Indication: ANXIETY
     Dosage: TWO TABLETS ONCE A DAY
     Route: 048
     Dates: start: 20210312

REACTIONS (3)
  - Fall [Unknown]
  - Soft tissue injury [Unknown]
  - Drug ineffective [Unknown]
